FAERS Safety Report 7533430-X (Version None)
Quarter: 2011Q2

REPORT INFORMATION
  Report Type: 
  Country: None (occurrence: None)
  Receive Date: 20110608
  Receipt Date: 20051114
  Transmission Date: 20111010
  Serious: Yes (Hospitalization)
  Sender: FDA-Public Use
  Company Number: PHMT2005CA00504

PATIENT
  Sex: Male

DRUGS (3)
  1. MORPHINE [Concomitant]
     Dosage: UNK, Q4H PRN
  2. CLOZAPINE [Suspect]
     Dosage: UNK
     Dates: start: 20010605
  3. AVELOX [Concomitant]
     Dosage: UNK
     Dates: start: 20051013

REACTIONS (5)
  - FAECALOMA [None]
  - ASCITES [None]
  - TERMINAL STATE [None]
  - ABDOMINAL DISTENSION [None]
  - ABDOMINAL PAIN [None]
